FAERS Safety Report 7900324-7 (Version None)
Quarter: 2011Q4

REPORT INFORMATION
  Report Type: 
  Country: None (occurrence: None)
  Receive Date: 20111108
  Receipt Date: 20111028
  Transmission Date: 20120403
  Serious: Yes (Hospitalization)
  Sender: FDA-Public Use
  Company Number: JP-GENZYME-RENA-1001365

PATIENT
  Sex: Female

DRUGS (3)
  1. RENAGEL [Suspect]
     Indication: HYPERPHOSPHATAEMIA
     Dosage: 0.5 G, TID
     Route: 048
     Dates: start: 20110810, end: 20111021
  2. ALFAROL [Suspect]
     Indication: HYPOCALCAEMIA
     Dosage: 0.5 MCG, QD
     Route: 048
     Dates: start: 20110810, end: 20111021
  3. CINACALCET HYDROCHLORIDE [Suspect]
     Indication: PRODUCT USED FOR UNKNOWN INDICATION
     Route: 065

REACTIONS (1)
  - LIVER DISORDER [None]
